FAERS Safety Report 8077634-9 (Version None)
Quarter: 2012Q1

REPORT INFORMATION
  Report Type: 
  Country: None (occurrence: None)
  Receive Date: 20120127
  Receipt Date: 20120124
  Transmission Date: 20120608
  Serious: Yes (Hospitalization)
  Sender: FDA-Public Use
  Company Number: IT-PFIZER INC-2011294056

PATIENT
  Age: 79 Year
  Sex: Female

DRUGS (11)
  1. MEDROL [Suspect]
     Indication: RHEUMATOID ARTHRITIS
     Dosage: 2 MG, DAILY
     Route: 048
     Dates: start: 20061207
  2. COLECALCIFEROL [Concomitant]
     Dosage: 20 GTT, WEEKLY
     Route: 048
     Dates: start: 20061207
  3. GASTRO GEL [Concomitant]
     Dosage: 2 G, 2X/DAY
     Route: 048
     Dates: start: 20090703
  4. PLAQUENIL [Concomitant]
     Dosage: 200 MG, DAILY
     Route: 048
     Dates: start: 20080204
  5. DIDROGYL [Concomitant]
     Dosage: 1.5 MG,DAILY
     Route: 048
     Dates: start: 20080204
  6. LEVOTHYROXINE SODIUM [Concomitant]
     Dosage: 50 UG, DAILY
     Route: 048
     Dates: start: 20090406, end: 20100927
  7. MABTHERA [Suspect]
     Indication: RHEUMATOID ARTHRITIS
     Dosage: 1000 MG, CYCLIC
     Route: 042
     Dates: start: 20080528, end: 20100621
  8. IMOVANE [Concomitant]
     Dosage: 7.5 MG, DAILY
     Route: 048
  9. ESOMEPRAZOLE MAGNESIUM [Concomitant]
     Dosage: 40 MG, DAILY
     Route: 048
     Dates: start: 20090909
  10. ARCOXIA [Concomitant]
     Dosage: 90 MG, ALTERNATE DAY
     Route: 048
     Dates: start: 20090703
  11. RAMIPRIL/HYDROCHLOROTHIAZIDE [Concomitant]
     Dosage: 1 DAILY
     Route: 048
     Dates: start: 20090703

REACTIONS (1)
  - OVARIAN NEOPLASM [None]
